FAERS Safety Report 19762877 (Version 5)
Quarter: 2021Q4

REPORT INFORMATION
  Report Type: Spontaneous
  Country: US (occurrence: US)
  Receive Date: 20210830
  Receipt Date: 20211021
  Transmission Date: 20220303
  Serious: Yes (Hospitalization)
  Sender: FDA-Public Use
  Company Number: US-PFIZER INC-202100971082

PATIENT
  Age: 61 Year
  Sex: Male
  Weight: 64.85 kg

DRUGS (3)
  1. CHANTIX [Suspect]
     Active Substance: VARENICLINE TARTRATE
     Indication: Smoking cessation therapy
     Dosage: 1 MG, TWICE A DAY
     Dates: start: 202105, end: 2021
  2. LISINOPRIL [Concomitant]
     Active Substance: LISINOPRIL
     Dosage: 20 MG
  3. ATORVASTATIN [Concomitant]
     Active Substance: ATORVASTATIN
     Dosage: 40 MG

REACTIONS (4)
  - Dizziness [Recovered/Resolved]
  - Vomiting [Recovered/Resolved]
  - Illness [Unknown]
  - Off label use [Recovered/Resolved]

NARRATIVE: CASE EVENT DATE: 20210501
